FAERS Safety Report 8205772-6 (Version None)
Quarter: 2012Q1

REPORT INFORMATION
  Report Type: 
  Country: None (occurrence: None)
  Receive Date: 20120313
  Receipt Date: 20120308
  Transmission Date: 20120608
  Serious: Yes (Other)
  Sender: FDA-Public Use
  Company Number: US-PFIZER INC-2012028916

PATIENT
  Sex: Male
  Weight: 88.889 kg

DRUGS (3)
  1. VIAGRA [Suspect]
     Dosage: 100MG TABLET OF SIDENAFIL CITRATE BY SPLITTING IT INTO HALF
     Route: 048
     Dates: start: 20120201, end: 20120201
  2. VICODIN [Concomitant]
     Indication: BACK PAIN
     Dosage: UNK
  3. VIAGRA [Suspect]
     Indication: ERECTILE DYSFUNCTION
     Dosage: UNK
     Dates: start: 19990101

REACTIONS (1)
  - BACK DISORDER [None]
